FAERS Safety Report 11142502 (Version 1)
Quarter: 2015Q2

REPORT INFORMATION
  Report Type: Spontaneous
  Country: US (occurrence: US)
  Receive Date: 20150527
  Receipt Date: 20150527
  Transmission Date: 20150821
  Serious: Yes (Hospitalization, Other)
  Sender: FDA-Public Use
  Company Number: US-JAZZ-2014-US-016892

PATIENT
  Age: 17 Year
  Sex: Female

DRUGS (4)
  1. CLONAZEPAM. [Suspect]
     Active Substance: CLONAZEPAM
     Indication: ANXIETY
  2. XYREM [Suspect]
     Active Substance: SODIUM OXYBATE
     Dosage: 4.5 G, BID
     Route: 048
     Dates: start: 201409, end: 20141123
  3. XYREM [Suspect]
     Active Substance: SODIUM OXYBATE
     Indication: CATAPLEXY
     Dosage: 2.25 G, BID
     Route: 048
     Dates: start: 201409, end: 201409
  4. XYREM [Suspect]
     Active Substance: SODIUM OXYBATE
     Indication: NARCOLEPSY
     Dosage: DOSE ADJUSTMENTS
     Route: 048
     Dates: start: 201409, end: 201409

REACTIONS (17)
  - Anxiety [Recovering/Resolving]
  - Autoimmune disorder [Unknown]
  - Labile blood pressure [Unknown]
  - Personality change [Unknown]
  - Agitation [Unknown]
  - Weight decreased [Unknown]
  - Product use issue [Unknown]
  - Nausea [Unknown]
  - Depression [Recovering/Resolving]
  - Agoraphobia [Unknown]
  - Headache [Unknown]
  - Disturbance in attention [Unknown]
  - Rash generalised [Unknown]
  - Dark circles under eyes [Unknown]
  - Musculoskeletal stiffness [Unknown]
  - Activities of daily living impaired [Unknown]
  - Oral surgery [Unknown]

NARRATIVE: CASE EVENT DATE: 2014
